FAERS Safety Report 4414325-7 (Version None)
Quarter: 2004Q3

REPORT INFORMATION
  Report Type: 
  Country: None (occurrence: None)
  Receive Date: 20040701
  Receipt Date: 20040120
  Transmission Date: 20050211
  Serious: Yes (Life-Threatening, Hospitalization)
  Sender: FDA-Public Use
  Company Number: VISP-PR-0401S-0022 (0)

PATIENT
  Age: 81 Year
  Sex: Female

DRUGS (8)
  1. VISIPAQUE [Suspect]
     Indication: LUNG NEOPLASM MALIGNANT
     Dosage: 100 ML, SINGLE DOSE; IV (SEE IMAGE)
     Route: 042
     Dates: start: 20040119, end: 20040119
  2. MEGESTROL ACETATE (MEGACE) [Concomitant]
  3. DIFLUCAN [Concomitant]
  4. LEVOLFLOXACIN [Concomitant]
  5. ATIVAN [Concomitant]
  6. PROMETHAZINE HYDROCHLORIDE (PHENERGAN) [Concomitant]
  7. DECADRON [Concomitant]
  8. PEPCID [Concomitant]

REACTIONS (1)
  - ANAPHYLACTIC REACTION [None]
